FAERS Safety Report 10270950 (Version 1)
Quarter: 2014Q2

REPORT INFORMATION
  Report Type: Spontaneous
  Country: JP (occurrence: None)
  Receive Date: 20140626
  Receipt Date: 20140626
  Transmission Date: 20141212
  Serious: Yes (Death, Other)
  Sender: FDA-Public Use
  Company Number: 2014-19814

PATIENT
  Age: 96 Year
  Sex: Male

DRUGS (16)
  1. EYLEA (ALFIBERCEPT) INJECTION [Suspect]
     Indication: AGE-RELATED MACULAR DEGENERATION
     Route: 031
     Dates: start: 20140430, end: 20140430
  2. CRAVIT (LEVOFLOXACIN) [Concomitant]
  3. BRONUCK (BROMFENAC SODIUM) [Concomitant]
  4. SOLANTAL (TIARAMIDE HYDROCHLORIDE) [Concomitant]
  5. ULGUT (BENEXATE HYDROCHLORIDE) [Concomitant]
  6. RINDERON A [BETAMETHASONE SODIUM PHOSPHATE,NEOMYCIN SULFATE] (BETAMETHASONE SODIUM PHOSPHATE, NEOMYCIN SULFATE) [Concomitant]
  7. FLOMAX /01418603/ (CEFCAPENE PIVOXIL HYDROCHLORIDE) [Concomitant]
  8. MUCODYNE (CARBOCISTEINE) [Concomitant]
  9. CLARITH (CLARITHROMYCIN) [Concomitant]
  10. SPIRIVA [Concomitant]
  11. MUCOSOLATE L (AMBROXOL HYDROCHLORIDE) [Concomitant]
  12. BAYASPIRIN (ACETYLSALICYLIC ACID) (ACETYLSALICYLIC ACID) [Concomitant]
  13. PLAVIX (CLOPIDOGREL BISULFATE) (CLOPIDOGREL BISULFATE) [Concomitant]
  14. NEXIUM /01479302/ (ESOMEPRAZOLE MAGNESIUM) [Concomitant]
  15. SIGMART (NICORANDIL) [Concomitant]
  16. NEOSYNESIN /00116302/ (PHENYLEPHRINE HYDROCHLORIDE) [Concomitant]

REACTIONS (1)
  - Death [None]
